FAERS Safety Report 13847269 (Version 9)
Quarter: 2019Q3

REPORT INFORMATION
  Report Type: Report from Study
  Country: CA (occurrence: CA)
  Receive Date: 20170808
  Receipt Date: 20190827
  Transmission Date: 20191004
  Serious: Yes (Hospitalization, Other)
  Sender: FDA-Public Use
  Company Number: CA-BRISTOL-MYERS SQUIBB COMPANY-BMS-2017-050229

PATIENT
  Age: 90 Year
  Sex: Female

DRUGS (2)
  1. ABATACEPT [Suspect]
     Active Substance: ABATACEPT
     Indication: RHEUMATOID ARTHRITIS
     Dosage: 500 MILLIGRAM, Q4WK
     Route: 042
     Dates: start: 20130416
  2. ABATACEPT [Suspect]
     Active Substance: ABATACEPT
     Indication: PRODUCT USED FOR UNKNOWN INDICATION
     Dosage: 750 MILLIGRAM, Q4WK
     Route: 042

REACTIONS (16)
  - Malaise [Unknown]
  - Dysphonia [Unknown]
  - Product dose omission [Unknown]
  - Bronchitis [Recovering/Resolving]
  - Asthenia [Unknown]
  - Bone pain [Unknown]
  - Vomiting [Unknown]
  - Dizziness [Unknown]
  - Fall [Unknown]
  - Vein rupture [Unknown]
  - Diarrhoea [Recovered/Resolved]
  - Gait disturbance [Unknown]
  - Adverse event [Unknown]
  - Vertigo [Unknown]
  - Dehydration [Unknown]
  - Back pain [Unknown]

NARRATIVE: CASE EVENT DATE: 20170505
